FAERS Safety Report 4385081-6 (Version None)
Quarter: 2004Q2

REPORT INFORMATION
  Report Type: 
  Country: None (occurrence: None)
  Receive Date: 20040624
  Receipt Date: 20040624
  Transmission Date: 20050107
  Serious: Yes (Hospitalization)
  Sender: FDA-Public Use
  Company Number: None

PATIENT
  Sex: Female
  Weight: 79.5 kg

DRUGS (11)
  1. RITUXIMAB [Suspect]
     Indication: MANTLE CELL LYMPHOMA
     Dosage: 375 MG/M2 =750 MG IV
     Route: 042
     Dates: start: 20040219, end: 20040219
  2. VINCRISTINE [Concomitant]
  3. CYCLOPHOSPHAMIDE [Concomitant]
  4. FLUCONAZOLE [Concomitant]
  5. SULFAMETHOXAZOLE + TRIMETHOPRIM [Concomitant]
  6. VERAPAMIL [Concomitant]
  7. SIMVASTATIN [Concomitant]
  8. TAMSULOSIN [Concomitant]
  9. DONEPEZIL HCL [Concomitant]
  10. OMEPRAZOLE [Concomitant]
  11. PROMETHAZINE [Concomitant]

REACTIONS (5)
  - CONFUSIONAL STATE [None]
  - DYSPNOEA [None]
  - TACHYCARDIA [None]
  - TACHYPNOEA [None]
  - TREMOR [None]
